FAERS Safety Report 10700367 (Version 4)
Quarter: 2015Q2

REPORT INFORMATION
  Report Type: Spontaneous
  Country: JP (occurrence: None)
  Receive Date: 20150107
  Receipt Date: 20150506
  Transmission Date: 20150821
  Serious: Yes (Hospitalization, Other)
  Sender: FDA-Public Use
  Company Number: ADR-2015-00014

PATIENT
  Age: 61 Year
  Sex: Male

DRUGS (1)
  1. GABALON INTRATHECAL [Suspect]
     Active Substance: BACLOFEN
     Indication: NEURODEGENERATIVE DISORDER
     Dates: start: 20110422

REACTIONS (7)
  - Emphysema [None]
  - Respiratory disorder [None]
  - Disease progression [None]
  - Pneumonia [None]
  - Heterotaxia [None]
  - General physical health deterioration [None]
  - Neurodegenerative disorder [None]

NARRATIVE: CASE EVENT DATE: 20140930
